FAERS Safety Report 23565776 (Version 1)
Quarter: 2024Q1

REPORT INFORMATION
  Report Type: Spontaneous
  Country: US (occurrence: None)
  Receive Date: 20240224
  Receipt Date: 20240224
  Transmission Date: 20240410
  Serious: Yes (Death)
  Sender: FDA-Public Use
  Company Number: None

PATIENT
  Age: 71 Year
  Sex: Female

DRUGS (1)
  1. GOCOVRI [Suspect]
     Active Substance: AMANTADINE
     Indication: Parkinson^s disease
     Dosage: 137MG QD ORAL
     Route: 048
     Dates: start: 20220112, end: 20230803

REACTIONS (3)
  - Cognitive disorder [None]
  - Fall [None]
  - Hypophagia [None]

NARRATIVE: CASE EVENT DATE: 20230808
